FAERS Safety Report 15131031 (Version 1)
Quarter: 2018Q3

REPORT INFORMATION
  Report Type: Spontaneous
  Country: GB (occurrence: GB)
  Receive Date: 20180711
  Receipt Date: 20180711
  Transmission Date: 20181010
  Serious: Yes (Death, Other)
  Sender: FDA-Public Use
  Company Number: GB-PFIZER INC-2018217944

PATIENT
  Age: 32 Year
  Sex: Male
  Weight: 94 kg

DRUGS (18)
  1. ALPRAZOLAM. [Suspect]
     Active Substance: ALPRAZOLAM
  2. APOMORPHINE [Suspect]
     Active Substance: APOMORPHINE
     Dosage: UNK
  3. NALOXONE [Suspect]
     Active Substance: NALOXONE
  4. CAFFEINE. [Suspect]
     Active Substance: CAFFEINE
  5. NORDIAZEPAM [Suspect]
     Active Substance: NORDAZEPAM
  6. BENZOYLECGONINE [Suspect]
     Active Substance: BENZOYLECGONINE
  7. PHENACETIN [Suspect]
     Active Substance: PHENACETIN
  8. CHLORPHENIRAMINE. [Suspect]
     Active Substance: CHLORPHENIRAMINE
  9. COCAINE [Suspect]
     Active Substance: COCAINE
  10. MORPHINE SULFATE. [Suspect]
     Active Substance: MORPHINE SULFATE
  11. DIAZEPAM. [Suspect]
     Active Substance: DIAZEPAM
  12. PARACETAMOL [Suspect]
     Active Substance: ACETAMINOPHEN
  13. LEVAMISOLE [Suspect]
     Active Substance: LEVAMISOLE
  14. CODEINE [Suspect]
     Active Substance: CODEINE
  15. HEROIN [Suspect]
     Active Substance: DIAMORPHINE
  16. NICOTINE. [Suspect]
     Active Substance: NICOTINE
  17. PREGABALIN. [Suspect]
     Active Substance: PREGABALIN
     Dosage: UNK
  18. CLONAZEPAM. [Suspect]
     Active Substance: CLONAZEPAM
     Dosage: UNK

REACTIONS (3)
  - Intentional product misuse [Fatal]
  - Pulmonary oedema [Unknown]
  - Respiratory arrest [Unknown]
